FAERS Safety Report 5521708-0 (Version None)
Quarter: 2007Q4

REPORT INFORMATION
  Report Type: 
  Country: None (occurrence: None)
  Receive Date: 20071120
  Receipt Date: 20071112
  Transmission Date: 20080405
  Serious: Yes (Hospitalization)
  Sender: FDA-Public Use
  Company Number: NL-SOLVAY-00207035007

PATIENT
  Age: 80 Year
  Sex: Male

DRUGS (1)
  1. COVERSYL [Suspect]
     Indication: HYPERTENSION
     Dosage: DAILY DOSE: 4 MILLIGRAM(S)
     Route: 048
     Dates: start: 20070715, end: 20070730

REACTIONS (1)
  - ANGINA PECTORIS [None]
